FAERS Safety Report 9823382 (Version 2)
Quarter: 2014Q1

REPORT INFORMATION
  Report Type: Spontaneous
  Country: US (occurrence: US)
  Receive Date: 20140116
  Receipt Date: 20140116
  Transmission Date: 20141002
  Serious: No
  Sender: FDA-Public Use
  Company Number: US-GILEAD-2011-0035112

PATIENT
  Age: 87 Year
  Sex: Female

DRUGS (21)
  1. LETAIRIS [Suspect]
     Indication: PULMONARY HYPERTENSION
     Route: 048
     Dates: start: 20100528
  2. DILTIAZEM HYDROCHLORIDE [Concomitant]
  3. VALSARTAN-HYDROCHLOROTHIAZIDE [Concomitant]
  4. ASPIRIN [Concomitant]
  5. FUROSEMIDE [Concomitant]
  6. SILDENAFIL CITRATE [Concomitant]
  7. IPRATROPIUM BROMIDE [Concomitant]
  8. FLUTICASONE-SALMETEROL [Concomitant]
  9. PREDNISONE [Concomitant]
  10. CHLORPHENIRAMINE-HYDROCODONE [Concomitant]
  11. GLIPIZIDE-METFORMIN [Concomitant]
  12. OXYCODONE-ACETAMINOPHEN [Concomitant]
  13. DOCUSATE SODIUM\SENNOSIDES [Concomitant]
  14. POLYETHYLENE GLYCOL [Concomitant]
  15. SERTRALINE [Concomitant]
  16. ALPRAZOLAM [Concomitant]
  17. PENICILLIN V POTASSIUM [Concomitant]
  18. ZOLPIDEM [Concomitant]
  19. OXCARBAZEPINE [Concomitant]
  20. POTASSIUM CHLORIDE [Concomitant]
  21. CYANOCOBALAMIN [Concomitant]

REACTIONS (1)
  - Asthenia [Recovered/Resolved]
